FAERS Safety Report 4590929-6 (Version None)
Quarter: 2005Q1

REPORT INFORMATION
  Report Type: 
  Country: None (occurrence: None)
  Receive Date: 20050225
  Receipt Date: 20050216
  Transmission Date: 20050727
  Serious: Yes (Death, Hospitalization, Other)
  Sender: FDA-Public Use
  Company Number: US-JNJFOC-20041002715

PATIENT
  Sex: Female
  Weight: 81.65 kg

DRUGS (10)
  1. REMICADE [Suspect]
     Dosage: TWO DOSES IN SEP-2004.
     Route: 042
  2. REMICADE [Suspect]
     Route: 042
  3. REMICADE [Suspect]
     Indication: RHEUMATOID ARTHRITIS
     Route: 042
  4. METHOTREXATE [Concomitant]
     Indication: RHEUMATOID ARTHRITIS
  5. CELEBREX [Concomitant]
     Indication: RHEUMATOID ARTHRITIS
  6. PREDNISONE [Concomitant]
     Indication: RHEUMATOID ARTHRITIS
  7. FOLIC ACID [Concomitant]
  8. COUMADIN [Concomitant]
     Dosage: ALTERNATE DAYS DEPENDENT ON PROTIME
  9. DYAZIDE [Concomitant]
  10. DYAZIDE [Concomitant]

REACTIONS (15)
  - ACUTE RESPIRATORY DISTRESS SYNDROME [None]
  - ASTHENIA [None]
  - CARDIAC DISORDER [None]
  - CYSTITIS [None]
  - HISTOPLASMOSIS [None]
  - IMMUNE SYSTEM DISORDER [None]
  - INFECTION [None]
  - LIVER DISORDER [None]
  - PYREXIA [None]
  - RENAL IMPAIRMENT [None]
  - RESPIRATORY FAILURE [None]
  - SEPSIS [None]
  - SMALL INTESTINAL HAEMORRHAGE [None]
  - THERAPY NON-RESPONDER [None]
  - WEIGHT DECREASED [None]
